FAERS Safety Report 25732967 (Version 1)
Quarter: 2025Q3

REPORT INFORMATION
  Report Type: Report from Study
  Country: CA (occurrence: CA)
  Receive Date: 20250828
  Receipt Date: 20250828
  Transmission Date: 20251021
  Serious: Yes (Hospitalization)
  Sender: JOHNSON AND JOHNSON
  Company Number: CA-JNJFOC-20150602288

PATIENT
  Age: 37 Year
  Sex: Male

DRUGS (2)
  1. SIMPONI [Suspect]
     Active Substance: GOLIMUMAB
     Indication: Ankylosing spondylitis
     Route: 058
     Dates: start: 20121011, end: 20150518
  2. SIMPONI [Suspect]
     Active Substance: GOLIMUMAB
     Indication: Spondylitis

REACTIONS (1)
  - Renal neoplasm [Unknown]
